FAERS Safety Report 9002210 (Version 2)
Quarter: 2013Q1

REPORT INFORMATION
  Report Type: Spontaneous
  Country: FR (occurrence: FR)
  Receive Date: 20130107
  Receipt Date: 20130215
  Transmission Date: 20140127
  Serious: Yes (Hospitalization)
  Sender: FDA-Public Use
  Company Number: FR-009507513-1212FRA009792

PATIENT
  Age: 60 Year
  Sex: Female

DRUGS (7)
  1. EZETROL [Suspect]
     Dosage: 10 MG, QD
     Route: 048
  2. DUPHASTON [Suspect]
     Dosage: UNK
     Route: 048
     Dates: start: 201209, end: 20121119
  3. ESTREVA [Suspect]
     Dosage: 1 MG, QD
     Route: 003
     Dates: start: 201209, end: 20121119
  4. TAHOR [Suspect]
     Dosage: 40 MG, QD
     Route: 048
  5. MONO-TILDIEM [Suspect]
     Dosage: 200 MG, QD
     Route: 048
  6. KARDEGIC [Suspect]
     Dosage: 75 MG, QD
     Route: 048
  7. NATISPRAY [Concomitant]
     Dosage: UNK, PRN

REACTIONS (1)
  - Optic neuritis [Not Recovered/Not Resolved]
